FAERS Safety Report 4491760-2 (Version None)
Quarter: 2004Q4

REPORT INFORMATION
  Report Type: 
  Country: None (occurrence: None)
  Receive Date: 20041103
  Receipt Date: 20041025
  Transmission Date: 20050328
  Serious: Yes (Death)
  Sender: FDA-Public Use
  Company Number: US-MERCK-0410USA04080

PATIENT
  Age: 56 Year

DRUGS (3)
  1. PRINIVIL [Suspect]
     Route: 048
  2. ISOSORBIDE DINITRATE [Suspect]
     Route: 065
  3. ATENOLOL [Suspect]
     Route: 048

REACTIONS (1)
  - COMPLETED SUICIDE [None]
